FAERS Safety Report 23033115 (Version 1)
Quarter: 2023Q4

REPORT INFORMATION
  Report Type: Spontaneous
  Country: US (occurrence: None)
  Receive Date: 20231004
  Receipt Date: 20231004
  Transmission Date: 20240109
  Serious: Yes (Other)
  Sender: FDA-Public Use
  Company Number: None

PATIENT
  Age: 70 Year
  Sex: 0

DRUGS (3)
  1. DUTASTERIDE [Suspect]
     Active Substance: DUTASTERIDE
     Dates: start: 20230818, end: 20230821
  2. LATANOPROST OP SOL 0.005% [Concomitant]
     Dates: start: 20210302
  3. DORZOL/TIMOLOL SOL 22.3-6.8MG/ML [Concomitant]
     Dates: start: 20210120

REACTIONS (3)
  - Photophobia [None]
  - Visual impairment [None]
  - Impaired driving ability [None]

NARRATIVE: CASE EVENT DATE: 20230818
